FAERS Safety Report 16175729 (Version 3)
Quarter: 2019Q2

REPORT INFORMATION
  Report Type: Spontaneous
  Country: KR (occurrence: KR)
  Receive Date: 20190409
  Receipt Date: 20190418
  Transmission Date: 20190711
  Serious: Yes (Other)
  Sender: FDA-Public Use
  Company Number: KR-PFIZER INC-2019145549

PATIENT
  Age: 76 Year
  Sex: Male

DRUGS (1)
  1. NORVASC [Suspect]
     Active Substance: AMLODIPINE BESYLATE
     Indication: HYPERTENSION
     Dosage: 10 MG, 1X/DAY
     Route: 048
     Dates: start: 20190401, end: 201904

REACTIONS (6)
  - Prostatomegaly [Unknown]
  - Dysuria [Recovered/Resolved]
  - Blood urine present [Unknown]
  - Urethral pain [Unknown]
  - Urinary tract inflammation [Unknown]
  - Renal impairment [Unknown]

NARRATIVE: CASE EVENT DATE: 201904
